FAERS Safety Report 6247481-9 (Version None)
Quarter: 2009Q2

REPORT INFORMATION
  Report Type: 
  Country: None (occurrence: None)
  Receive Date: 20090626
  Receipt Date: 20090623
  Transmission Date: 20091009
  Serious: Yes (Other)
  Sender: FDA-Public Use
  Company Number: US-ASTRAZENECA-2009UW17113

PATIENT
  Age: 62 Year
  Sex: Male

DRUGS (7)
  1. CRESTOR [Suspect]
     Route: 048
     Dates: start: 20090601
  2. LISINOPRIL [Concomitant]
  3. CARVEDILOL [Concomitant]
  4. CLONIDINE [Concomitant]
  5. ALLOPURINOL [Concomitant]
  6. DIGOXIN [Concomitant]
  7. AMLODIPINE [Concomitant]

REACTIONS (1)
  - RECTAL HAEMORRHAGE [None]
